FAERS Safety Report 24803247 (Version 1)
Quarter: 2025Q1

REPORT INFORMATION
  Report Type: Spontaneous
  Country: US (occurrence: US)
  Receive Date: 20250103
  Receipt Date: 20250103
  Transmission Date: 20250409
  Serious: Yes (Other)
  Sender: LUPIN
  Company Number: US-LUPIN PHARMACEUTICALS INC.-2024-12888

PATIENT
  Age: 10 Year
  Sex: Male

DRUGS (3)
  1. CETIRIZINE [Suspect]
     Active Substance: CETIRIZINE HYDROCHLORIDE
     Indication: Antiallergic therapy
     Route: 065
  2. FLUTICASONE [Suspect]
     Active Substance: FLUTICASONE
     Indication: Nasal congestion
     Route: 045
  3. OXYMETAZOLINE [Suspect]
     Active Substance: OXYMETAZOLINE
     Indication: Nasal congestion
     Route: 045

REACTIONS (6)
  - Epistaxis [Unknown]
  - Disease recurrence [Unknown]
  - Nasal dryness [Unknown]
  - Nasal discomfort [Unknown]
  - Rebound nasal congestion [Unknown]
  - Lacrimal haemorrhage [Unknown]
